FAERS Safety Report 7756818-0 (Version None)
Quarter: 2011Q3

REPORT INFORMATION
  Report Type: 
  Country: None (occurrence: None)
  Receive Date: 20110916
  Receipt Date: 20110907
  Transmission Date: 20111222
  Serious: Yes (Hospitalization, Other)
  Sender: FDA-Public Use
  Company Number: PHHY2011PL79722

PATIENT
  Age: 71 Year
  Sex: Female

DRUGS (6)
  1. SOTALOL HCL [Suspect]
     Indication: AGONAL RHYTHM
     Dosage: 320 MG, UNK
  2. LOSARTAN POTASSIUM [Concomitant]
  3. INDAPAMIDE [Concomitant]
  4. SINTROM [Concomitant]
  5. RAMIPRIL [Concomitant]
  6. GLIMEPIRIDE [Concomitant]

REACTIONS (8)
  - ELECTROCARDIOGRAM QT PROLONGED [None]
  - EMOTIONAL DISTRESS [None]
  - DIASTOLIC DYSFUNCTION [None]
  - ARRHYTHMIA [None]
  - TORSADE DE POINTES [None]
  - PRESYNCOPE [None]
  - VENTRICULAR EXTRASYSTOLES [None]
  - LEFT VENTRICULAR HYPERTROPHY [None]
